FAERS Safety Report 10752263 (Version 1)
Quarter: 2015Q1

REPORT INFORMATION
  Report Type: Spontaneous
  Country: US (occurrence: US)
  Receive Date: 20150130
  Receipt Date: 20150130
  Transmission Date: 20150721
  Serious: No
  Sender: FDA-Public Use
  Company Number: US-009507513-1501USA009072

PATIENT
  Sex: Female

DRUGS (2)
  1. IMPLANON [Suspect]
     Active Substance: ETONOGESTREL
     Indication: CONTRACEPTION
     Dosage: 1 ROD (68 MG)
     Route: 059
     Dates: start: 201202
  2. BIOTIN [Concomitant]
     Active Substance: BIOTIN
     Dosage: 1 TABLET DAILY
     Route: 048

REACTIONS (1)
  - Fibrocystic breast disease [Recovered/Resolved]

NARRATIVE: CASE EVENT DATE: 2012
